FAERS Safety Report 4305997-6 (Version None)
Quarter: 2004Q1

REPORT INFORMATION
  Report Type: 
  Country: None (occurrence: None)
  Receive Date: 20040227
  Receipt Date: 20031222
  Transmission Date: 20041129
  Serious: Yes (Death, Other)
  Sender: FDA-Public Use
  Company Number: 200320686US

PATIENT
  Sex: Female

DRUGS (6)
  1. TAXOTERE [Suspect]
     Dosage: DOSE: NONE
  2. THALIDOMIDE [Suspect]
     Indication: RENAL CELL CARCINOMA STAGE UNSPECIFIED
     Route: 048
     Dates: start: 20030707, end: 20030728
  3. GLEEVEC [Suspect]
     Dosage: DOSE: UNK
  4. XELODA [Concomitant]
     Dosage: DOSE: UNK
  5. GEMCITABINE [Concomitant]
     Dosage: DOSE: UNK
  6. NAPROSYN [Concomitant]

REACTIONS (4)
  - BLOOD CREATININE INCREASED [None]
  - MALIGNANT NEOPLASM PROGRESSION [None]
  - OEDEMA [None]
  - RENAL CELL CARCINOMA STAGE UNSPECIFIED [None]
